FAERS Safety Report 24560213 (Version 1)
Quarter: 2024Q4

REPORT INFORMATION
  Report Type: Other
  Country: NL (occurrence: NL)
  Receive Date: 20241029
  Receipt Date: 20241029
  Transmission Date: 20250114
  Serious: Yes (Hospitalization)
  Sender: EYWA PHARMA INC.
  Company Number: NL-Eywa Pharma Inc.-2164025

PATIENT
  Age: 79 Year
  Sex: Male

DRUGS (10)
  1. VALPROIC ACID [Suspect]
     Active Substance: VALPROIC ACID
     Indication: Bipolar disorder
  2. FLUCLOXACILLIN [Interacting]
     Active Substance: FLUCLOXACILLIN
  3. LITHIUM [Concomitant]
     Active Substance: LITHIUM
  4. ACETAMINOPHEN [Concomitant]
     Active Substance: ACETAMINOPHEN
  5. AKINETON [Concomitant]
     Active Substance: BIPERIDEN HYDROCHLORIDE
  6. APIXABAN [Concomitant]
     Active Substance: APIXABAN
  7. LORAZEPAM [Concomitant]
     Active Substance: LORAZEPAM
  8. SIMVASTATIN [Concomitant]
     Active Substance: SIMVASTATIN
  9. METOPROLOL [Concomitant]
     Active Substance: METOPROLOL
  10. METFORMIN [Concomitant]
     Active Substance: METFORMIN HYDROCHLORIDE

REACTIONS (3)
  - Drug level decreased [Not Recovered/Not Resolved]
  - Product use in unapproved indication [Unknown]
  - Drug interaction [Unknown]
